FAERS Safety Report 9491101 (Version 1)
Quarter: 2013Q3

REPORT INFORMATION
  Report Type: Spontaneous
  Country: US (occurrence: None)
  Receive Date: 20130826
  Receipt Date: 20130826
  Transmission Date: 20140515
  Serious: Yes (Death, Other)
  Sender: FDA-Public Use
  Company Number: DAV-AE-MTX-13-46

PATIENT
  Age: 70 Year
  Sex: Female

DRUGS (4)
  1. METHOTREXATE [Suspect]
     Indication: RHEUMATOID ARTHRITIS
     Dosage: 15 MG (6 TABS/1X/WK)
     Route: 048
     Dates: start: 2008, end: 201108
  2. DESONIDE [Concomitant]
  3. CEPHALEXIN [Concomitant]
  4. PREDNISONE [Concomitant]

REACTIONS (4)
  - Gait disturbance [None]
  - Memory impairment [None]
  - Neoplasm malignant [None]
  - Liver disorder [None]
